FAERS Safety Report 7860446-6 (Version None)
Quarter: 2011Q4

REPORT INFORMATION
  Report Type: 
  Country: None (occurrence: None)
  Receive Date: 20111027
  Receipt Date: 20111021
  Transmission Date: 20120403
  Serious: Yes (Hospitalization)
  Sender: FDA-Public Use
  Company Number: PHHO2011KR17823

PATIENT
  Sex: Female
  Weight: 51 kg

DRUGS (4)
  1. VINCRISTINE [Concomitant]
     Indication: LYMPHOMA
     Dosage: 2 MG, 3 WEEKS
     Route: 042
     Dates: start: 20110624
  2. AFINITOR [Suspect]
     Indication: T-CELL LYMPHOMA
     Dosage: 5 MG, UNK
     Route: 048
     Dates: start: 20110624, end: 20111002
  3. CYCLOPHOSPHAMIDE [Concomitant]
     Indication: LYMPHOMA
     Dosage: 1125 MG, 3 WEEKS
     Route: 042
     Dates: start: 20110624
  4. ADRIAMYCIN PFS [Concomitant]
     Indication: LYMPHOMA
     Dosage: 75 MG, 3 WEEKS
     Route: 042
     Dates: start: 20110624

REACTIONS (1)
  - FEBRILE NEUTROPENIA [None]
